FAERS Safety Report 18121898 (Version 1)
Quarter: 2020Q3

REPORT INFORMATION
  Report Type: Spontaneous
  Country: US (occurrence: US)
  Receive Date: 20200807
  Receipt Date: 20200807
  Transmission Date: 20201103
  Serious: No
  Sender: FDA-Public Use
  Company Number: US-JNJFOC-20200739033

PATIENT
  Age: 51 Year
  Sex: Male
  Weight: 68.1 kg

DRUGS (1)
  1. MENS ROGAINE EXTRA STRENGTH [Suspect]
     Active Substance: MINOXIDIL
     Indication: ALOPECIA
     Dosage: HALF OF CAP TWICE A DAY?PRODUCT LAST USED ON 17/JUL/2020
     Route: 061
     Dates: start: 20200714

REACTIONS (3)
  - Skin disorder [Recovered/Resolved]
  - Application site irritation [Recovered/Resolved]
  - Application site rash [Recovering/Resolving]

NARRATIVE: CASE EVENT DATE: 20200715
